FAERS Safety Report 13525911 (Version 1)
Quarter: 2017Q2

REPORT INFORMATION
  Report Type: Spontaneous
  Country: US (occurrence: US)
  Receive Date: 20170508
  Receipt Date: 20170508
  Transmission Date: 20170830
  Serious: Yes (Hospitalization)
  Sender: FDA-Public Use
  Company Number: None

PATIENT
  Sex: Female

DRUGS (16)
  1. AMLODIPINE [Concomitant]
     Active Substance: AMLODIPINE BESYLATE
  2. RISPERIDONE. [Concomitant]
     Active Substance: RISPERIDONE
  3. METOPROLOL. [Concomitant]
     Active Substance: METOPROLOL
  4. OXYCO/APAP [Concomitant]
  5. ZOLPIDEM [Concomitant]
     Active Substance: ZOLPIDEM\ZOLPIDEM TARTRATE
  6. FENOFIBRATE. [Concomitant]
     Active Substance: FENOFIBRATE
  7. ATORVASTATIN [Concomitant]
     Active Substance: ATORVASTATIN
  8. FLUTICASONE. [Concomitant]
     Active Substance: FLUTICASONE
  9. SMZ-TMP [Concomitant]
     Active Substance: SULFAMETHOXAZOLE\TRIMETHOPRIM
  10. TAC [Concomitant]
     Active Substance: TRIAMCINOLONE ACETONIDE
  11. CYCLOBENZAPRINE. [Concomitant]
     Active Substance: CYCLOBENZAPRINE
  12. ALPRAZOLAM. [Concomitant]
     Active Substance: ALPRAZOLAM
  13. CETIRIZINE [Concomitant]
     Active Substance: CETIRIZINE HYDROCHLORIDE
  14. COSENTYX [Suspect]
     Active Substance: SECUKINUMAB
     Indication: PSORIASIS
     Dosage: FREQUENCY - QMO
     Route: 058
  15. QUETIAPINE. [Concomitant]
     Active Substance: QUETIAPINE
  16. MORPHINE [Concomitant]
     Active Substance: MORPHINE

REACTIONS (1)
  - Hospitalisation [None]

NARRATIVE: CASE EVENT DATE: 2017
